FAERS Safety Report 6076142-4 (Version None)
Quarter: 2009Q1

REPORT INFORMATION
  Report Type: 
  Country: None (occurrence: None)
  Receive Date: 20090212
  Receipt Date: 20090205
  Transmission Date: 20090719
  Serious: Yes (Other)
  Sender: FDA-Public Use
  Company Number: GB-B.I. PHARMACEUTICALS,INC./RIDGEFIELD-2009-UK-00087UK

PATIENT
  Age: 62 Year
  Sex: Female
  Weight: 67 kg

DRUGS (7)
  1. TIOTROPIUM (00015/0190/A) [Suspect]
     Indication: CHRONIC OBSTRUCTIVE PULMONARY DISEASE
     Dosage: 1ANZ
     Route: 055
     Dates: start: 20081114, end: 20090102
  2. DIPYRIDAMOLE [Concomitant]
     Indication: CEREBROVASCULAR ACCIDENT
     Dosage: 200MG X2/1DAYS
     Route: 048
  3. NABUMETONE [Concomitant]
     Indication: RHEUMATOID ARTHRITIS
     Dosage: 500MG 2/1DAYS
     Route: 048
  4. NAFTIDROFURYL [Concomitant]
     Indication: ANGIOPATHY
     Dosage: 100MG X 3/1DAYS
     Route: 048
  5. SIMVASTATIN [Concomitant]
     Indication: MYOCARDIAL ISCHAEMIA
     Dosage: 40MG X1 DAYS (X2)
     Route: 048
  6. SIMVASTATIN [Concomitant]
     Indication: CEREBROVASCULAR ACCIDENT
  7. TRAMADOL HCL [Concomitant]
     Indication: RHEUMATOID ARTHRITIS
     Dosage: 50MG X3/1DAYS
     Route: 048

REACTIONS (3)
  - BLISTER [None]
  - PAIN [None]
  - RASH PRURITIC [None]
